FAERS Safety Report 7935677-7 (Version None)
Quarter: 2011Q4

REPORT INFORMATION
  Report Type: 
  Country: None (occurrence: None)
  Receive Date: 20111121
  Receipt Date: 20111110
  Transmission Date: 20120403
  Serious: Yes (Hospitalization)
  Sender: FDA-Public Use
  Company Number: AUR-APL-2011-05827

PATIENT
  Sex: Female
  Weight: 59.42 kg

DRUGS (18)
  1. CARVEDILOL [Suspect]
     Indication: PRODUCT USED FOR UNKNOWN INDICATION
     Dosage: 50 MG (25 MG, 2 IN 1 D), UNKNOWN
  2. SIMVASTATIN [Suspect]
     Indication: PRODUCT USED FOR UNKNOWN INDICATION
     Dosage: 80 MG (40 MG, 2 IN 1 D) ORAL
     Route: 048
  3. SUNITINIB MALATE [Suspect]
     Indication: PRODUCT USED FOR UNKNOWN INDICATION
     Dosage: 100 MG (50 MG, 2 IN 1 D) ORAL
     Route: 048
  4. TESSALON [Suspect]
     Indication: PRODUCT USED FOR UNKNOWN INDICATION
     Dosage: 300 MG (100 MG, 3 IN 1 D), ORAL
     Route: 048
  5. COLACE (DOCUSATE SODIUM) [Suspect]
     Indication: PRODUCT USED FOR UNKNOWN INDICATION
     Dosage: 200 MG (100 MG, 2 IN 1 D)
  6. ZOFRAN [Suspect]
     Indication: PRODUCT USED FOR UNKNOWN INDICATION
     Dosage: 1 DOSAGE FORMS, 6 HR, ORAL
     Route: 048
  7. EXTRA STRENGTH TYLENOL [Concomitant]
  8. MEGACE [Suspect]
     Indication: PRODUCT USED FOR UNKNOWN INDICATION
     Dosage: ORAL
     Route: 048
  9. MAGNESIUM CITRATE (MAGNESIUM CITRATE) [Suspect]
     Indication: PRODUCT USED FOR UNKNOWN INDICATION
     Dosage: ORAL
     Route: 048
  10. FERGON (FERROUS GLUCONAGE) [Suspect]
     Indication: IRON DEFICIENCY
     Dosage: 650 MG (325 MG, 2 IN 1 D), ORAL
     Route: 048
  11. ASPIRIN [Concomitant]
  12. CIPRO [Concomitant]
  13. LORTAB [Suspect]
     Indication: PRODUCT USED FOR UNKNOWN INDICATION
     Dosage: 1 DOSAGE FORMS 6 HR)
  14. PIOGLITAZONE HYDROCHLORIDE [Suspect]
     Indication: PRODUCT USED FOR UNKNOWN INDICATION
     Dosage: 30 MG (30 MG, 1 IN 1 D), ORAL
     Route: 048
  15. ACTONEL [Concomitant]
  16. AMLODIPINE [Suspect]
     Indication: PRODUCT USED FOR UNKNOWN INDICATION
     Dosage: 10 MG (10 MG, 1 IN 1 D) ORAL
     Route: 048
  17. RANITIDINE HYDROCHLORIDE [Suspect]
     Indication: PRODUCT USED FOR UNKNOWN INDICATION
     Dosage: 300 MG (150 MG, 2 IN 1 D)
  18. ARTIFICIAL TEARS (HYPROMELLOSE) [Concomitant]

REACTIONS (9)
  - MALAISE [None]
  - HEADACHE [None]
  - COGNITIVE DISORDER [None]
  - MENTAL STATUS CHANGES [None]
  - NAUSEA [None]
  - ABDOMINAL PAIN [None]
  - FATIGUE [None]
  - VOMITING [None]
  - CONFUSIONAL STATE [None]
